FAERS Safety Report 4564211-7 (Version None)
Quarter: 2005Q1

REPORT INFORMATION
  Report Type: 
  Country: None (occurrence: None)
  Receive Date: 20050128
  Receipt Date: 20050117
  Transmission Date: 20050727
  Serious: Yes (Hospitalization)
  Sender: FDA-Public Use
  Company Number: FR-ROCHE-392692

PATIENT
  Age: 41 Year
  Sex: Male

DRUGS (4)
  1. DACLIZUMAB [Suspect]
     Route: 042
  2. MYCOPHENOLATE MOFETIL [Suspect]
     Route: 065
  3. CORTICOSTEROID NOS [Suspect]
     Route: 065
  4. TACROLIMUS [Suspect]
     Route: 065

REACTIONS (2)
  - HEPATIC HAEMATOMA [None]
  - HEPATITIS C [None]
